FAERS Safety Report 12061270 (Version 1)
Quarter: 2016Q1

REPORT INFORMATION
  Report Type: Spontaneous
  Country: None (occurrence: US)
  Receive Date: 20160210
  Receipt Date: 20160210
  Transmission Date: 20160526
  Serious: No
  Sender: FDA-Public Use
  Company Number: US-ALLERGAN-1417949US

PATIENT
  Age: 26 Year
  Sex: Female

DRUGS (4)
  1. BOTOX [Suspect]
     Active Substance: ONABOTULINUMTOXINA
     Indication: TEMPOROMANDIBULAR JOINT SYNDROME
     Dosage: 200 UNITS, SINGLE
     Route: 030
     Dates: start: 20140805, end: 20140805
  2. BOTOX [Suspect]
     Active Substance: ONABOTULINUMTOXINA
     Indication: MIGRAINE
     Dosage: 200 UNITS, SINGLE
     Route: 030
     Dates: start: 20140805, end: 20140805
  3. CYCLOBENZAPRINE [Concomitant]
     Active Substance: CYCLOBENZAPRINE
     Indication: TEMPOROMANDIBULAR JOINT SYNDROME
  4. DOXYCYCLINE. [Concomitant]
     Active Substance: DOXYCYCLINE
     Indication: URINARY TRACT INFECTION
     Dosage: A COUPLE TIMES A WEEK

REACTIONS (8)
  - Eyelid ptosis [Recovered/Resolved]
  - Facial paresis [Not Recovered/Not Resolved]
  - Off label use [Unknown]
  - Injection site bruising [Recovered/Resolved]
  - Facial paresis [Not Recovered/Not Resolved]
  - Eyelid ptosis [Recovered/Resolved]
  - Eyelid oedema [Recovered/Resolved]
  - Eyelid pain [Unknown]

NARRATIVE: CASE EVENT DATE: 20140809
